FAERS Safety Report 21741487 (Version 1)
Quarter: 2022Q4

REPORT INFORMATION
  Report Type: Spontaneous
  Country: NO (occurrence: NO)
  Receive Date: 20221216
  Receipt Date: 20221216
  Transmission Date: 20230112
  Serious: Yes (Life-Threatening, Hospitalization)
  Sender: FDA-Public Use
  Company Number: NO-NOMAADVRE-PASRAPP-2022-Vbxb93

PATIENT
  Age: 26 Year
  Sex: Male

DRUGS (1)
  1. LISDEXAMFETAMINE DIMESYLATE [Suspect]
     Active Substance: LISDEXAMFETAMINE DIMESYLATE
     Indication: Attention deficit hyperactivity disorder
     Dosage: UNK
     Route: 065
     Dates: start: 202201, end: 202208

REACTIONS (10)
  - Abnormal behaviour [Recovering/Resolving]
  - Psychotic disorder [Unknown]
  - Euphoric mood [Unknown]
  - Aggression [Unknown]
  - Anxiety [Unknown]
  - Sleep disorder [Unknown]
  - Euphoric mood [Unknown]
  - Antisocial behaviour [Unknown]
  - Mania [Unknown]
  - Psychomotor hyperactivity [Unknown]

NARRATIVE: CASE EVENT DATE: 20220401
